FAERS Safety Report 6234255-8 (Version None)
Quarter: 2009Q2

REPORT INFORMATION
  Report Type: 
  Country: None (occurrence: None)
  Receive Date: 20090618
  Receipt Date: 20090611
  Transmission Date: 20091009
  Serious: Yes (Other)
  Sender: FDA-Public Use
  Company Number: CA-ASTRAZENECA-2009UW14341

PATIENT
  Age: 78 Year
  Sex: Female

DRUGS (6)
  1. SYMBICORT [Suspect]
     Route: 055
  2. ATACAND [Suspect]
     Route: 048
     Dates: start: 20040101
  3. TRIAZOLAM [Concomitant]
  4. EFFEXOR [Concomitant]
  5. CELEBREX [Concomitant]
  6. PARIET [Concomitant]

REACTIONS (1)
  - BURNING SENSATION MUCOSAL [None]
